FAERS Safety Report 7757264-6 (Version None)
Quarter: 2011Q3

REPORT INFORMATION
  Report Type: 
  Country: None (occurrence: None)
  Receive Date: 20110916
  Receipt Date: 20110905
  Transmission Date: 20111222
  Serious: Yes (Other)
  Sender: FDA-Public Use
  Company Number: SE-UCBSA-040708

PATIENT
  Sex: Female

DRUGS (4)
  1. PREDNISOLONE [Concomitant]
     Dosage: 10,10 MG
     Dates: start: 20080619
  2. PREDNISOLONE [Concomitant]
     Dosage: 5,5 MG
     Dates: start: 20051219, end: 20070115
  3. CIMZIA [Suspect]
     Indication: RHEUMATOID ARTHRITIS
     Dosage: 400 MG
     Route: 058
     Dates: start: 20110811, end: 20110823
  4. PREDNISOLONE [Concomitant]
     Dosage: 15,15 MG
     Dates: start: 20041220, end: 20050316

REACTIONS (1)
  - HAEMATOMA [None]
